FAERS Safety Report 16394080 (Version 1)
Quarter: 2019Q2

REPORT INFORMATION
  Report Type: Spontaneous
  Country: IT (occurrence: IT)
  Receive Date: 20190605
  Receipt Date: 20190605
  Transmission Date: 20190711
  Serious: Yes (Other)
  Sender: FDA-Public Use
  Company Number: IT-PFIZER INC-2019233846

PATIENT
  Sex: Male

DRUGS (2)
  1. LEVETIRACETAM. [Suspect]
     Active Substance: LEVETIRACETAM
     Dosage: 1000 MG, DAILY
     Dates: start: 20140520
  2. ZEBINIX [Concomitant]
     Active Substance: ESLICARBAZEPINE ACETATE
     Indication: EPILEPSY
     Dosage: UNK

REACTIONS (1)
  - Head injury [Not Recovered/Not Resolved]

NARRATIVE: CASE EVENT DATE: 201405
